FAERS Safety Report 16152956 (Version 1)
Quarter: 2019Q2

REPORT INFORMATION
  Report Type: Spontaneous
  Country: DE (occurrence: DE)
  Receive Date: 20190403
  Receipt Date: 20190403
  Transmission Date: 20190711
  Serious: Yes (Hospitalization)
  Sender: FDA-Public Use
  Company Number: DE-AUROBINDO-AUR-APL-2017-47190

PATIENT

DRUGS (19)
  1. AVASTIN [Suspect]
     Active Substance: BEVACIZUMAB
     Indication: COLORECTAL CANCER METASTATIC
     Dosage: 547.5MG-550.0MG
     Route: 042
     Dates: start: 20130923, end: 20130923
  2. XELODA [Suspect]
     Active Substance: CAPECITABINE
     Indication: COLORECTAL CANCER
  3. DEXAMETHASONE. [Concomitant]
     Active Substance: DEXAMETHASONE
     Dosage: 8 MILLIGRAM
     Route: 042
     Dates: start: 20130923, end: 20131111
  4. AVASTIN [Suspect]
     Active Substance: BEVACIZUMAB
     Dosage: 7.5 MILLIGRAM/KILOGRAM
     Route: 042
     Dates: start: 20130923, end: 20131104
  5. LOPERAMIDE [Concomitant]
     Active Substance: LOPERAMIDE
     Indication: DIARRHOEA
     Dosage: UNK
     Route: 065
     Dates: start: 20131009, end: 20131014
  6. DEXAMETHASONE. [Concomitant]
     Active Substance: DEXAMETHASONE
     Indication: PROPHYLAXIS
     Dosage: 8 MILLIGRAM
     Route: 042
     Dates: start: 20130923
  7. CARVEDILOL. [Concomitant]
     Active Substance: CARVEDILOL
     Indication: HYPERTENSION
     Dosage: UNK
     Route: 065
     Dates: start: 20130930
  8. MCP [Concomitant]
     Active Substance: METOCLOPRAMIDE HYDROCHLORIDE
     Indication: NAUSEA
     Dosage: UNK
     Route: 065
     Dates: start: 20131104, end: 20131111
  9. AVASTIN [Suspect]
     Active Substance: BEVACIZUMAB
     Indication: COLON CANCER
     Dosage: 547.5 MILLIGRAM
     Route: 042
     Dates: start: 20131104, end: 20131104
  10. ONDANSETRON [Concomitant]
     Active Substance: ONDANSETRON
     Indication: PROPHYLAXIS
     Dosage: 8 MILLIGRAM
     Route: 042
     Dates: start: 20130923
  11. ONDANSETRON [Concomitant]
     Active Substance: ONDANSETRON
     Dosage: 8 MILLIGRAM
     Route: 042
     Dates: start: 20130923, end: 20131111
  12. OMEP [Concomitant]
     Active Substance: OMEPRAZOLE
     Indication: NAUSEA
     Dosage: ()
     Route: 065
     Dates: start: 20131104, end: 20131111
  13. TILIDIN [Concomitant]
     Active Substance: NALOXONE HYDROCHLORIDE\TILIDINE HYDROCHLORIDE
     Indication: PAIN IN EXTREMITY
     Dosage: UNK
     Route: 065
     Dates: start: 20131111, end: 20140130
  14. BEVACIZUMAB. [Suspect]
     Active Substance: BEVACIZUMAB
     Indication: PRODUCT USED FOR UNKNOWN INDICATION
     Dosage: 7.5 MILLIGRAM/KILOGRAM 547.5MG-550.0MG
     Route: 042
     Dates: start: 20130923, end: 20130923
  15. BEVACIZUMAB. [Suspect]
     Active Substance: BEVACIZUMAB
     Indication: COLON CANCER
     Dosage: 547.5 MILLIGRAM
     Route: 042
     Dates: start: 20131104, end: 20131104
  16. LOPERAMIDE [Concomitant]
     Active Substance: LOPERAMIDE
     Dosage: 4 MILLIGRAM
     Route: 048
     Dates: start: 20130930, end: 20131110
  17. INNOHEP [Concomitant]
     Active Substance: TINZAPARIN SODIUM
     Indication: VARICOSE VEIN
     Dosage: UNK
     Route: 065
     Dates: start: 20131028, end: 20131106
  18. OXALIPLATIN. [Suspect]
     Active Substance: OXALIPLATIN
     Indication: COLON CANCER
     Dosage: =170MG
     Route: 042
     Dates: start: 20130923, end: 20131111
  19. XELODA [Suspect]
     Active Substance: CAPECITABINE
     Indication: COLON CANCER
     Dosage: ON DAYS 1 TO14 OF EACH CYCLE
     Route: 048
     Dates: start: 20130923, end: 20131111

REACTIONS (1)
  - Cerebral infarction [Recovered/Resolved]

NARRATIVE: CASE EVENT DATE: 20131111
